FAERS Safety Report 8373456-X (Version None)
Quarter: 2012Q2

REPORT INFORMATION
  Report Type: 
  Country: None (occurrence: None)
  Receive Date: 20120521
  Receipt Date: 20120112
  Transmission Date: 20120825
  Serious: No
  Sender: FDA-Public Use
  Company Number: US-TEVA-317528USA

PATIENT
  Sex: Male

DRUGS (1)
  1. TREANDA [Suspect]
     Indication: LEUKAEMIA
     Dosage: DAILY

REACTIONS (4)
  - INJECTION SITE SWELLING [None]
  - EXTRAVASATION [None]
  - ERYTHEMA [None]
  - SKIN WARM [None]
